FAERS Safety Report 24185851 (Version 1)
Quarter: 2024Q3

REPORT INFORMATION
  Report Type: Spontaneous
  Country: US (occurrence: US)
  Receive Date: 20240807
  Receipt Date: 20240807
  Transmission Date: 20241017
  Serious: No
  Sender: PRINSTON PHARMACEUTICAL
  Company Number: US-PRINSTON PHARMACEUTICAL INC.-2024PRN00192

PATIENT
  Sex: Female

DRUGS (2)
  1. CLONAZEPAM [Suspect]
     Active Substance: CLONAZEPAM
     Indication: Anxiety
     Dosage: UNK
     Dates: start: 2022
  2. CLONAZEPAM [Suspect]
     Active Substance: CLONAZEPAM
     Indication: Panic disorder

REACTIONS (9)
  - Feeling abnormal [Unknown]
  - Thinking abnormal [Unknown]
  - Anxiety [Unknown]
  - Panic disorder [Unknown]
  - Performance status decreased [Unknown]
  - Drug ineffective [Unknown]
  - Dysarthria [Unknown]
  - Product substitution issue [Unknown]
  - Product quality issue [Unknown]
